FAERS Safety Report 25205680 (Version 2)
Quarter: 2025Q2

REPORT INFORMATION
  Report Type: Report from Study
  Country: US (occurrence: US)
  Receive Date: 20250417
  Receipt Date: 20250428
  Transmission Date: 20250717
  Serious: Yes (Other)
  Sender: DECIPHERA PHARMACEUTICALS
  Company Number: US-DECIPHERA PHARMACEUTICALS LLC-2025US000328

PATIENT
  Age: 55 Year
  Sex: Female

DRUGS (2)
  1. ROMVIMZA [Suspect]
     Active Substance: VIMSELTINIB
     Indication: Connective tissue neoplasm
     Dosage: 30 MILLIGRAM, TWICE WEEKLY
     Route: 048
     Dates: start: 20250325, end: 2025
  2. ROMVIMZA [Suspect]
     Active Substance: VIMSELTINIB
     Indication: Soft tissue neoplasm

REACTIONS (20)
  - Liver injury [Unknown]
  - Musculoskeletal stiffness [Unknown]
  - Diarrhoea [Recovering/Resolving]
  - Arthralgia [Unknown]
  - Feeling cold [Unknown]
  - Swelling face [Unknown]
  - Periorbital swelling [Unknown]
  - Micturition urgency [Unknown]
  - Headache [Unknown]
  - Blood glucose increased [Unknown]
  - Blood potassium increased [Unknown]
  - Mean platelet volume decreased [Unknown]
  - Nausea [Unknown]
  - White blood cell count decreased [Unknown]
  - Rash pruritic [Recovered/Resolved]
  - Lacrimation increased [Unknown]
  - Fatigue [Unknown]
  - Rash erythematous [Recovered/Resolved]
  - Blood creatine phosphokinase increased [Unknown]
  - Therapeutic product effect increased [Unknown]

NARRATIVE: CASE EVENT DATE: 20250101
